FAERS Safety Report 9326057 (Version 1)
Quarter: 2013Q2

REPORT INFORMATION
  Report Type: Spontaneous
  Country: ES (occurrence: ES)
  Receive Date: 20130604
  Receipt Date: 20130604
  Transmission Date: 20140414
  Serious: Yes (Death)
  Sender: FDA-Public Use
  Company Number: ES-JNJFOC-20130515399

PATIENT
  Sex: 0

DRUGS (29)
  1. DOXORUBICIN [Suspect]
     Indication: BURKITT^S LEUKAEMIA
     Dosage: CYCLE B FOR 15 MINUTES ON DAYS 32-33
     Route: 042
  2. DOXORUBICIN [Suspect]
     Indication: BURKITT^S LYMPHOMA
     Dosage: CYCLE B FOR 15 MINUTES ON DAYS 32-33
     Route: 042
  3. CYCLOPHOSPHAMIDE [Suspect]
     Indication: BURKITT^S LEUKAEMIA
     Dosage: 1 HOUR ON DAYS 1-5 (PREPHASE) AND CYCLE B ON DAYS 29-33
     Route: 042
  4. CYCLOPHOSPHAMIDE [Suspect]
     Indication: BURKITT^S LYMPHOMA
     Dosage: 1 HOUR ON DAYS 1-5 (PREPHASE) AND CYCLE B ON DAYS 29-33
     Route: 042
  5. PREDNISONE [Suspect]
     Indication: BURKITT^S LEUKAEMIA
     Dosage: ON DAYS 1-5 (PREPHASE)
     Route: 040
  6. PREDNISONE [Suspect]
     Indication: BURKITT^S LYMPHOMA
     Dosage: ON DAYS 1-5 (PREPHASE)
     Route: 040
  7. RITUXIMAB [Suspect]
     Indication: BURKITT^S LEUKAEMIA
     Dosage: 4 HOUR ON DAYS 7; CYCLE A AND CYCLE B ON DAY 28; CYCLE C ON DAYS 49
     Route: 042
  8. RITUXIMAB [Suspect]
     Indication: BURKITT^S LYMPHOMA
     Dosage: 4 HOUR ON DAYS 7; CYCLE A AND CYCLE B ON DAY 28; CYCLE C ON DAYS 49
     Route: 042
  9. VINCRISTINE [Suspect]
     Indication: BURKITT^S LEUKAEMIA
     Dosage: ABSOLUTE ON DAY 8; CYCLE A AND CYCLE B ON DAY 29
     Route: 040
  10. VINCRISTINE [Suspect]
     Indication: BURKITT^S LYMPHOMA
     Dosage: ABSOLUTE ON DAY 8; CYCLE A AND CYCLE B ON DAY 29
     Route: 040
  11. METHOTREXATE [Suspect]
     Indication: BURKITT^S LEUKAEMIA
     Dosage: FOR 24 HOURS ON DAY 8; CYCLE A AND CYCLE B ON DAY 29; CYCLE C ON DAY 50
     Route: 042
  12. METHOTREXATE [Suspect]
     Indication: BURKITT^S LYMPHOMA
     Dosage: FOR 24 HOURS ON DAY 8; CYCLE A AND CYCLE B ON DAY 29; CYCLE C ON DAY 50
     Route: 042
  13. IPHOSPHAMIDE [Suspect]
     Indication: BURKITT^S LEUKAEMIA
     Dosage: FOR 1 HOUR ON DAY 8-12; CYCLE A
     Route: 042
  14. IPHOSPHAMIDE [Suspect]
     Indication: BURKITT^S LYMPHOMA
     Dosage: FOR 1 HOUR ON DAY 8-12; CYCLE A
     Route: 042
  15. TENIPOSIDE [Suspect]
     Indication: BURKITT^S LEUKAEMIA
     Dosage: FOR 1 HOUR ON DAY 11-12; CYCLE A
     Route: 042
  16. TENIPOSIDE [Suspect]
     Indication: BURKITT^S LYMPHOMA
     Dosage: FOR 1 HOUR ON DAY 11-12; CYCLE A
     Route: 042
  17. CYTARABINE [Suspect]
     Indication: BURKITT^S LEUKAEMIA
     Dosage: FOR 1 HOUR PER 12 HOUR ON DAY 11-12; CYCLE A
     Route: 042
  18. CYTARABINE [Suspect]
     Indication: BURKITT^S LEUKAEMIA
     Dosage: EVERY 3 HOUR/ 12 HOUR ON DAYS 54
     Route: 042
  19. CYTARABINE [Suspect]
     Indication: BURKITT^S LYMPHOMA
     Dosage: FOR 1 HOUR PER 12 HOUR ON DAY 11-12; CYCLE A
     Route: 042
  20. CYTARABINE [Suspect]
     Indication: BURKITT^S LYMPHOMA
     Dosage: EVERY 3 HOUR/ 12 HOUR ON DAYS 54
     Route: 042
  21. DEXAMETHASONE [Suspect]
     Indication: BURKITT^S LEUKAEMIA
     Dosage: ON DAYS 29-33 IN CYCLE B AND CYCLE 3 ON DAYS 50-54
     Route: 040
  22. DEXAMETHASONE [Suspect]
     Indication: BURKITT^S LYMPHOMA
     Dosage: ON DAYS 29-33 IN CYCLE B AND CYCLE 3 ON DAYS 50-54
     Route: 040
  23. VINDESINE [Suspect]
     Indication: BURKITT^S LEUKAEMIA
     Dosage: MAXIMUM 5 MG ON DAYS 50 ON CYCLE C
     Route: 040
  24. VINDESINE [Suspect]
     Indication: BURKITT^S LYMPHOMA
     Dosage: MAXIMUM 5 MG ON DAYS 50 ON CYCLE C
     Route: 040
  25. ETOPOSIDE [Suspect]
     Indication: BURKITT^S LEUKAEMIA
     Dosage: ON DAYS 53-54 ON CYCLE C OVER 1 HOUR
     Route: 042
  26. ETOPOSIDE [Suspect]
     Indication: BURKITT^S LYMPHOMA
     Dosage: ON DAYS 53-54 ON CYCLE C OVER 1 HOUR
     Route: 042
  27. METHOTREXATE [Suspect]
     Indication: NERVOUS SYSTEM DISORDER
     Dosage: ON DAYS 1-8-12-29-33
     Route: 037
  28. CYTARABINE [Suspect]
     Indication: NERVOUS SYSTEM DISORDER
     Dosage: ON DAYS 1-8-12-29-33
     Route: 065
  29. DEXAMETHASONE [Suspect]
     Indication: NERVOUS SYSTEM DISORDER
     Dosage: ON DAYS 1-8-12-29-33
     Route: 065

REACTIONS (1)
  - Central nervous system haemorrhage [Fatal]
